FAERS Safety Report 19235298 (Version 1)
Quarter: 2021Q2

REPORT INFORMATION
  Report Type: Spontaneous
  Country: JP (occurrence: JP)
  Receive Date: 20210509
  Receipt Date: 20210509
  Transmission Date: 20210717
  Serious: Yes (Other)
  Sender: FDA-Public Use
  Company Number: JP-SA-2021SA149458

PATIENT
  Age: 14 Year
  Sex: Male

DRUGS (1)
  1. EVOLTRA [Suspect]
     Active Substance: CLOFARABINE
     Indication: PRODUCT USED FOR UNKNOWN INDICATION
     Dosage: UNK
     Route: 041
     Dates: start: 20210425

REACTIONS (2)
  - Diarrhoea [Not Recovered/Not Resolved]
  - Nephrotic syndrome [Not Recovered/Not Resolved]

NARRATIVE: CASE EVENT DATE: 2021
